FAERS Safety Report 9846741 (Version 1)
Quarter: 2014Q1

REPORT INFORMATION
  Report Type: Spontaneous
  Country: CA (occurrence: CA)
  Receive Date: 20140127
  Receipt Date: 20140127
  Transmission Date: 20141002
  Serious: Yes (Other)
  Sender: FDA-Public Use
  Company Number: CA-009507513-1401CAN010470

PATIENT
  Age: 28 Year
  Sex: Male

DRUGS (1)
  1. MIRTAZAPINE [Suspect]
     Route: 048

REACTIONS (3)
  - Nightmare [Unknown]
  - Abnormal dreams [Unknown]
  - Hallucination [Unknown]
